FAERS Safety Report 8597823-4 (Version None)
Quarter: 2012Q3

REPORT INFORMATION
  Report Type: 
  Country: None (occurrence: None)
  Receive Date: 20120816
  Receipt Date: 20120808
  Transmission Date: 20120928
  Serious: No
  Sender: FDA-Public Use
  Company Number: BR-B.I. PHARMACEUTICALS,INC./RIDGEFIELD-2012-BR-00914BR

PATIENT
  Sex: Female

DRUGS (3)
  1. TRAYENTA [Suspect]
     Indication: TYPE 2 DIABETES MELLITUS
     Dosage: 5 MG
     Route: 048
     Dates: end: 20120601
  2. GLUCOVANCE [Concomitant]
     Indication: TYPE 2 DIABETES MELLITUS
     Dates: start: 20120601
  3. MICARDIS [Concomitant]
     Indication: HYPERTENSION

REACTIONS (2)
  - OEDEMA MOUTH [None]
  - HYPERSENSITIVITY [None]
